FAERS Safety Report 5842560-X (Version None)
Quarter: 2008Q3

REPORT INFORMATION
  Report Type: 
  Country: None (occurrence: None)
  Receive Date: 20080812
  Receipt Date: 20080731
  Transmission Date: 20090109
  Serious: Yes (Other)
  Sender: FDA-Public Use
  Company Number: US-PFIZER INC-2008064267

PATIENT
  Sex: Female
  Weight: 113 kg

DRUGS (1)
  1. DEPO-PROVERA SUSPENSION/INJ [Suspect]
     Indication: CONTRACEPTION
     Dates: start: 20080526, end: 20080526

REACTIONS (3)
  - GENITAL HAEMORRHAGE [None]
  - NASOPHARYNGITIS [None]
  - PAIN [None]
